FAERS Safety Report 7913718-0 (Version None)
Quarter: 2011Q4

REPORT INFORMATION
  Report Type: 
  Country: None (occurrence: None)
  Receive Date: 20111115
  Receipt Date: 20111104
  Transmission Date: 20120403
  Serious: Yes (Hospitalization, Other)
  Sender: FDA-Public Use
  Company Number: US-BAYER-201037360NA

PATIENT
  Age: 39 Year
  Sex: Female
  Weight: 65.76 kg

DRUGS (12)
  1. ASPIRIN [Concomitant]
  2. VALTREX [Concomitant]
     Dosage: 500 MG, UNK
     Dates: start: 20061002
  3. AMOXICILLIN [Concomitant]
     Dosage: 500 MG, UNK
     Dates: start: 20061011
  4. YASMIN [Suspect]
     Indication: CONTRACEPTION
     Dosage: UNK
     Route: 048
     Dates: start: 20030801, end: 20031101
  5. HYDROCODONE BITARTRATE [Concomitant]
  6. YAZ [Suspect]
     Indication: CONTRACEPTION
     Dosage: UNK
     Route: 048
     Dates: start: 20060901, end: 20061101
  7. NIFEDIPINE [Concomitant]
     Dosage: UNK
     Dates: start: 20060101
  8. DIPYRIDAMOLE [Concomitant]
  9. NITRO-BID [Concomitant]
  10. NITROGLYCERIN [Concomitant]
  11. BOSENTAN [Concomitant]
  12. PRILOSEC [Concomitant]

REACTIONS (4)
  - CONGENITAL ARTERIAL MALFORMATION [None]
  - SUBCLAVIAN ARTERY STENOSIS [None]
  - SUBCLAVIAN ARTERY THROMBOSIS [None]
  - PAIN [None]
